FAERS Safety Report 23097797 (Version 1)
Quarter: 2023Q4

REPORT INFORMATION
  Report Type: Spontaneous
  Country: FR (occurrence: FR)
  Receive Date: 20231023
  Receipt Date: 20231023
  Transmission Date: 20240110
  Serious: Yes (Hospitalization)
  Sender: FDA-Public Use
  Company Number: None

PATIENT
  Age: 69 Year
  Sex: Male
  Weight: 90 kg

DRUGS (2)
  1. CLOPIDOGREL [Suspect]
     Active Substance: CLOPIDOGREL BISULFATE
     Indication: Myocardial ischaemia
     Dosage: 1 DOSAGE FORMS DAILY; 1 TAB PER DAY
     Dates: start: 2010, end: 20230127
  2. FLUINDIONE [Suspect]
     Active Substance: FLUINDIONE
     Indication: Coronary artery bypass
     Dosage: .75 DOSAGE FORMS DAILY; 3/4 OF A TABLET PER DAY
     Dates: start: 2010, end: 20230127

REACTIONS (2)
  - Anaemia [Recovered/Resolved]
  - Epistaxis [Recovered/Resolved]

NARRATIVE: CASE EVENT DATE: 20221201
